FAERS Safety Report 17676084 (Version 5)
Quarter: 2021Q3

REPORT INFORMATION
  Report Type: Report from Study
  Country: US (occurrence: US)
  Receive Date: 20200416
  Receipt Date: 20210720
  Transmission Date: 20211014
  Serious: Yes (Other)
  Sender: FDA-Public Use
  Company Number: US-SHIRE-US202009743

PATIENT
  Age: 68 Year
  Sex: Female

DRUGS (4)
  1. PRIVIGEN [Concomitant]
     Active Substance: HUMAN IMMUNOGLOBULIN G
  2. CUVITRU [Suspect]
     Active Substance: HUMAN IMMUNOGLOBULIN G
     Indication: PRIMARY IMMUNODEFICIENCY SYNDROME
     Dosage: UNK
     Route: 065
  3. HUMAN NORMAL IMMUNOGLOBULIN [Suspect]
     Active Substance: HUMAN IMMUNOGLOBULIN G
     Indication: PRIMARY IMMUNODEFICIENCY SYNDROME
     Dosage: UNK
     Route: 042
  4. GAMMAGARD LIQUID [Suspect]
     Active Substance: HUMAN IMMUNOGLOBULIN G
     Indication: PRIMARY IMMUNODEFICIENCY SYNDROME
     Dosage: UNK
     Route: 065

REACTIONS (16)
  - Malaise [Unknown]
  - Fluid retention [Not Recovered/Not Resolved]
  - Bronchitis [Not Recovered/Not Resolved]
  - Erythema [Unknown]
  - Cough [Unknown]
  - Pruritus [Unknown]
  - Diarrhoea [Recovering/Resolving]
  - Nausea [Unknown]
  - Fall [Unknown]
  - Headache [Unknown]
  - Pneumothorax [Unknown]
  - Renal atrophy [Unknown]
  - Neck injury [Unknown]
  - Pyrexia [Unknown]
  - Infusion site swelling [Unknown]
  - Swelling [Unknown]

NARRATIVE: CASE EVENT DATE: 20200413
